FAERS Safety Report 11590090 (Version 3)
Quarter: 2015Q4

REPORT INFORMATION
  Report Type: Spontaneous
  Country: GB (occurrence: GB)
  Receive Date: 20151002
  Receipt Date: 20151229
  Transmission Date: 20160304
  Serious: Yes (Other)
  Sender: FDA-Public Use
  Company Number: GB-009507513-1509GBR011523

PATIENT
  Age: 17 Year
  Sex: Female

DRUGS (1)
  1. NEXPLANON [Suspect]
     Active Substance: ETONOGESTREL
     Indication: CONTRACEPTION
     Dosage: TOTAL DAILY DOSE: 35-45 MG
     Route: 059
     Dates: start: 20150301

REACTIONS (8)
  - Implant site infection [Unknown]
  - Drug dose omission [Unknown]
  - Unintended pregnancy [Recovered/Resolved]
  - Implant site scar [Unknown]
  - Implant site abscess [Unknown]
  - Pregnancy with implant contraceptive [Recovered/Resolved]
  - Abortion induced [Unknown]
  - Medical device complication [Not Recovered/Not Resolved]

NARRATIVE: CASE EVENT DATE: 2015
